FAERS Safety Report 9919523 (Version 1)
Quarter: 2014Q1

REPORT INFORMATION
  Report Type: Spontaneous
  Country: BR (occurrence: BR)
  Receive Date: 20140224
  Receipt Date: 20140224
  Transmission Date: 20141002
  Serious: Yes (Death)
  Sender: FDA-Public Use
  Company Number: BR-ACTELION-A-CH2014-95088

PATIENT
  Sex: Female

DRUGS (1)
  1. ZAVESCA [Suspect]
     Indication: PRODUCT USED FOR UNKNOWN INDICATION
     Dosage: 100 MG, UNK
     Route: 048
     Dates: start: 20080701

REACTIONS (1)
  - Death [Fatal]
